FAERS Safety Report 5745520-2 (Version None)
Quarter: 2008Q2

REPORT INFORMATION
  Report Type: 
  Country: None (occurrence: None)
  Receive Date: 20080519
  Receipt Date: 20080327
  Transmission Date: 20081010
  Serious: No
  Sender: FDA-Public Use
  Company Number: TPA2008A00400

PATIENT
  Age: 66 Year
  Sex: Male
  Weight: 104.3273 kg

DRUGS (18)
  1. ROZEREM [Suspect]
     Indication: INSOMNIA
     Dosage: 8 MG, AS REQUIRED, PER ORAL
     Route: 048
     Dates: start: 20070713
  2. AMITIZA [Suspect]
     Indication: CONSTIPATION
     Dosage: 24 MCG, AS REQUIRED, PER ORAL
     Route: 048
     Dates: start: 20070101
  3. DARVON N-100 (ACETYLSALICYLIC ACID, CAFFEINE, DEXTROPROPOXYPHENE NAPSI [Suspect]
     Indication: BACK PAIN
     Dosage: PER ORAL ; 100 MG, Q 4 TO 6 HOURS, PER ORAL
     Route: 048
     Dates: end: 20080325
  4. DARVON N-100 (ACETYLSALICYLIC ACID, CAFFEINE, DEXTROPROPOXYPHENE NAPSI [Suspect]
     Indication: BACK PAIN
     Dosage: PER ORAL ; 100 MG, Q 4 TO 6 HOURS, PER ORAL
     Route: 048
     Dates: start: 20080326
  5. PROPOXYPHENE (DEXTROPROPOXYPHENE) [Suspect]
     Indication: BACK PAIN
     Dosage: PER ORAL ; 65 MG, Q 4 TO 6 HOURS, PER ORAL
     Route: 048
     Dates: start: 20000101, end: 20080325
  6. PROPOXYPHENE (DEXTROPROPOXYPHENE) [Suspect]
     Indication: BACK PAIN
     Dosage: PER ORAL ; 65 MG, Q 4 TO 6 HOURS, PER ORAL
     Route: 048
     Dates: start: 20080326
  7. LISINOPRIL [Concomitant]
  8. FLOMAX [Concomitant]
  9. ASPIRIN [Concomitant]
  10. NEXUIM (ESOMEPRAZOLE MAGNESIUM) [Concomitant]
  11. CHOLESTOFF (SITOSTEROL) [Concomitant]
  12. ATENOLOL [Concomitant]
  13. PROSCAR [Concomitant]
  14. MIRALAX [Concomitant]
  15. TRIAMTERENE AND HYDROCHLOROTHIAZIDE [Concomitant]
  16. VITAMIN B12 [Concomitant]
  17. VITAMIN D [Concomitant]
  18. UNKNOWN SUPPLEMENTS (MINERAL SUPPLEMENTS) [Concomitant]

REACTIONS (10)
  - ASTHENIA [None]
  - BACK PAIN [None]
  - BOWEL MOVEMENT IRREGULARITY [None]
  - CONDITION AGGRAVATED [None]
  - DRUG INEFFECTIVE [None]
  - INITIAL INSOMNIA [None]
  - JOINT SWELLING [None]
  - MIDDLE INSOMNIA [None]
  - OEDEMA PERIPHERAL [None]
  - WEIGHT LOSS POOR [None]
